FAERS Safety Report 6718954-7 (Version None)
Quarter: 2010Q2

REPORT INFORMATION
  Report Type: 
  Country: None (occurrence: None)
  Receive Date: 20100511
  Receipt Date: 20100426
  Transmission Date: 20101027
  Serious: Yes (Life-Threatening, Hospitalization, Disabling, Other)
  Sender: FDA-Public Use
  Company Number: US-BAYER-200937025NA

PATIENT
  Age: 45 Year
  Sex: Female
  Weight: 77 kg

DRUGS (17)
  1. YASMIN [Suspect]
     Indication: ORAL CONTRACEPTION
     Dosage: FROM 2001 OR 2002 UNTIL DEC-2008, ONE PILL DAILY
     Dates: end: 20081201
  2. LEVOXYL [Concomitant]
     Indication: GOITRE
     Dosage: USED LEVOKYL OR SYNTHROID
     Dates: start: 19920101, end: 20100101
  3. SYNTHROID [Concomitant]
     Indication: GOITRE
     Dosage: USED LEVOKYL OR SYNTHROID
     Dates: start: 19920101, end: 20100101
  4. WARFARIN SODIUM [Concomitant]
     Dates: start: 20081227
  5. ADVIL [Concomitant]
     Dates: start: 19990101, end: 20080101
  6. ANTIBIOTICS [Concomitant]
  7. SPIRONOLACTONE [Concomitant]
     Indication: UNEVALUABLE EVENT
     Dosage: TWO TABLETS DAILY
     Dates: start: 20040101
  8. EFFEXOR XR [Concomitant]
     Indication: DEPRESSED MOOD
     Dates: start: 20000101
  9. XANAX [Concomitant]
     Indication: ANXIETY
     Dates: start: 20000101
  10. RESTASIS [Concomitant]
     Indication: UNEVALUABLE EVENT
     Dates: start: 20080730
  11. PROTONIX [Concomitant]
     Indication: GASTRITIS
     Dates: start: 20081208
  12. MELOXICAM [Concomitant]
     Indication: BACK PAIN
     Dates: start: 20081120
  13. CYCLOBENZAPRINE [Concomitant]
     Indication: BACK PAIN
     Dates: start: 20081120
  14. AMITIZA [Concomitant]
     Indication: IRRITABLE BOWEL SYNDROME
     Dates: start: 20081205
  15. BUPROPION HCL [Concomitant]
     Indication: DEPRESSED MOOD
     Dates: start: 20081205, end: 20081210
  16. PROPOXYPHENE N 100 W/ APAP [Concomitant]
     Indication: PAIN
     Dates: start: 20081219
  17. PENICILLIN VK [Concomitant]

REACTIONS (8)
  - ANXIETY [None]
  - DEEP VEIN THROMBOSIS [None]
  - IMPAIRED DRIVING ABILITY [None]
  - MOBILITY DECREASED [None]
  - PAIN [None]
  - POST THROMBOTIC SYNDROME [None]
  - PULMONARY EMBOLISM [None]
  - SWELLING [None]
